FAERS Safety Report 9708316 (Version 1)
Quarter: 2013Q4

REPORT INFORMATION
  Report Type: Spontaneous
  Country: FR (occurrence: FR)
  Receive Date: 20131125
  Receipt Date: 20131125
  Transmission Date: 20140711
  Serious: Yes (Hospitalization)
  Sender: FDA-Public Use
  Company Number: FR-PFIZER INC-2013332280

PATIENT
  Age: 60 Year
  Sex: Female

DRUGS (9)
  1. EFFEXOR LP [Suspect]
     Dosage: 75 MG, DAILY IN THE MORNING
     Route: 048
     Dates: start: 20130711, end: 20130716
  2. XEROQUEL [Suspect]
     Dosage: PROGRESSIVE DOSE UNTIL 300 MG
     Route: 048
     Dates: start: 20130510, end: 20130620
  3. XEROQUEL [Suspect]
     Dosage: 300 MG, 1X/DAY INTAKE IN THE EVENING
     Route: 048
     Dates: start: 20130621, end: 20130710
  4. XEROQUEL [Suspect]
     Dosage: 600 MG, 1X/DAY INTAKE IN THE EVENING
     Route: 048
     Dates: start: 20130711, end: 20130714
  5. XEROQUEL [Suspect]
     Dosage: 300 MG, 1X/DAY INTAKE IN THE EVENING
     Route: 048
     Dates: start: 20130715, end: 20130716
  6. RISPERDAL [Suspect]
     Dosage: 1 MG, 3X/DAY
     Route: 048
     Dates: start: 20130425, end: 20130716
  7. TRANXENE [Concomitant]
     Dosage: 10 MG, 3X/DAY
     Route: 048
     Dates: start: 20130424
  8. CRESTOR [Concomitant]
     Dosage: 5 MG, DAILY
     Route: 048
  9. ZOLPIDEM [Concomitant]
     Dosage: 1 DF DAILY IN THE EVENING
     Route: 048

REACTIONS (1)
  - Neuroleptic malignant syndrome [Recovered/Resolved]
